FAERS Safety Report 10377688 (Version 1)
Quarter: 2014Q1

REPORT INFORMATION
  Report Type: Spontaneous
  Country: US (occurrence: None)
  Receive Date: 20140306
  Receipt Date: 20140306
  Transmission Date: 20141002
  Serious: Yes (Other)
  Sender: FDA-Public Use
  Company Number: 163-21880-13031529

PATIENT
  Age: 63 Year
  Sex: Female
  Weight: 88.1 kg

DRUGS (3)
  1. REVLIMID (LENALIDOMIDE) (CAPSULES) [Suspect]
     Indication: PLASMA CELL MYELOMA
     Route: 048
     Dates: start: 200609, end: 2007
  2. DEXAMETHASONE [Concomitant]
  3. BISPHOSPHONATES [Concomitant]

REACTIONS (2)
  - Cerebral infarction [None]
  - Plasma cell myeloma [None]
